FAERS Safety Report 5150757-X (Version None)
Quarter: 2006Q4

REPORT INFORMATION
  Report Type: 
  Country: None (occurrence: None)
  Receive Date: 20061114
  Receipt Date: 20060925
  Transmission Date: 20070319
  Serious: Yes (Other)
  Sender: FDA-Public Use
  Company Number: US-ELI_LILLY_AND_COMPANY-US200609007175

PATIENT
  Age: 6 Year
  Sex: Male

DRUGS (4)
  1. STRATTERA [Suspect]
     Indication: ATTENTION DEFICIT/HYPERACTIVITY DISORDER
     Dosage: 1.1 MG/KG, UNK
     Dates: start: 20060801, end: 20060914
  2. STRATTERA [Suspect]
     Dosage: 0.5 MG/KG, UNK
     Dates: start: 20060701, end: 20060801
  3. TEGRETOL [Concomitant]
     Dosage: 200 MG, 3/D
     Dates: start: 20051101
  4. CLONIDINE [Concomitant]
     Dosage: 0.05 MG, EACH EVENING
     Dates: start: 20060302

REACTIONS (2)
  - CONDITION AGGRAVATED [None]
  - CONVULSION [None]
